FAERS Safety Report 15033658 (Version 1)
Quarter: 2018Q2

REPORT INFORMATION
  Report Type: Report from Study
  Country: US (occurrence: US)
  Receive Date: 20180619
  Receipt Date: 20180619
  Transmission Date: 20180711
  Serious: No
  Sender: FDA-Public Use
  Company Number: US-AMGEN-USASL2017034446

PATIENT
  Age: 30 Year
  Sex: Female
  Weight: 116 kg

DRUGS (11)
  1. CORLANOR [Suspect]
     Active Substance: IVABRADINE HYDROCHLORIDE
     Indication: SINUS TACHYCARDIA
     Dosage: 5 MG, BID
     Route: 048
     Dates: start: 201511
  2. ARIPIPRAZOLE. [Concomitant]
     Active Substance: ARIPIPRAZOLE
     Dosage: 10 MG, QD
     Route: 048
  3. CLONAZEPAM. [Concomitant]
     Active Substance: CLONAZEPAM
     Dosage: 1 MG, BID
  4. FLUTICASONE W/SALMETEROL [Concomitant]
     Active Substance: FLUTICASONE PROPIONATE\SALMETEROL XINAFOATE
     Dosage: 1 PUFF IN TO LUNGS EVERY 12 HOUR
  5. LEVALBUTEROL. [Concomitant]
     Active Substance: LEVALBUTEROL
     Indication: WHEEZING
     Dosage: 1 TO 2 PUFF IN TO LUNGS EVERY SIX HOUR
     Route: 045
  6. RANITIDINE HCL [Concomitant]
     Active Substance: RANITIDINE HYDROCHLORIDE
     Dosage: 75 MG, EVERY TWELVE HOUR
     Route: 048
  7. LAMOTRIGINE. [Concomitant]
     Active Substance: LAMOTRIGINE
     Dosage: 100 MG, QD
     Route: 048
  8. ERGOCALCIFEROL. [Concomitant]
     Active Substance: ERGOCALCIFEROL
     Dosage: UNK UNK, QD
     Route: 048
  9. FLUOXETIN [Concomitant]
     Active Substance: FLUOXETINE HYDROCHLORIDE
     Dosage: 20 MG, QD
  10. GABAPENTIN. [Concomitant]
     Active Substance: GABAPENTIN
     Dosage: 100 MG, TID
     Route: 048
  11. LEXAPRO [Concomitant]
     Active Substance: ESCITALOPRAM OXALATE
     Dosage: UNK

REACTIONS (17)
  - Fatigue [Unknown]
  - Palpitations [Unknown]
  - Dyspnoea [Unknown]
  - Autonomic nervous system imbalance [Unknown]
  - Body mass index increased [Unknown]
  - Sinus tachycardia [Unknown]
  - Dizziness [Unknown]
  - Off label use [Unknown]
  - Tachycardia [Unknown]
  - Heart rate irregular [Unknown]
  - Blood pressure abnormal [Unknown]
  - Obesity [Unknown]
  - Syncope [Unknown]
  - Fibromyalgia [Unknown]
  - Obsessive-compulsive disorder [Unknown]
  - Sleep apnoea syndrome [Unknown]
  - Malaise [Unknown]
